FAERS Safety Report 17037366 (Version 1)
Quarter: 2019Q4

REPORT INFORMATION
  Report Type: Report from Study
  Country: PR (occurrence: PR)
  Receive Date: 20191115
  Receipt Date: 20191115
  Transmission Date: 20200122
  Serious: Yes (Other)
  Sender: FDA-Public Use
  Company Number: PR-JNJFOC-20191112950

PATIENT
  Age: 72 Year
  Sex: Male

DRUGS (16)
  1. DIOVAN [Concomitant]
     Active Substance: VALSARTAN
  2. JALYN [Concomitant]
     Active Substance: DUTASTERIDE\TAMSULOSIN HYDROCHLORIDE
  3. INSULIN GLARGINE [Concomitant]
     Active Substance: INSULIN GLARGINE
  4. BUPROPION HYDROCHLORIDE. [Concomitant]
     Active Substance: BUPROPION HYDROCHLORIDE
  5. IMBRUVICA [Suspect]
     Active Substance: IBRUTINIB
     Indication: CHRONIC LYMPHOCYTIC LEUKAEMIA
     Dosage: 560 MG, QD
     Route: 048
     Dates: start: 20160220, end: 20180601
  6. COZAAR [Concomitant]
     Active Substance: LOSARTAN POTASSIUM
  7. JANUMET [Concomitant]
     Active Substance: METFORMIN HYDROCHLORIDE\SITAGLIPTIN PHOSPHATE
  8. DEXILANT [Concomitant]
     Active Substance: DEXLANSOPRAZOLE
  9. ALPRAZOLAM. [Concomitant]
     Active Substance: ALPRAZOLAM
  10. INVOKANA [Concomitant]
     Active Substance: CANAGLIFLOZIN
  11. AMBIEN [Concomitant]
     Active Substance: ZOLPIDEM TARTRATE
  12. BETAMETHASONE. [Concomitant]
     Active Substance: BETAMETHASONE
  13. IMBRUVICA [Suspect]
     Active Substance: IBRUTINIB
     Indication: B-CELL SMALL LYMPHOCYTIC LYMPHOMA
     Dosage: 560 MG, QD
     Route: 048
     Dates: start: 20180929
  14. RANITIDINE. [Concomitant]
     Active Substance: RANITIDINE
  15. COREG [Concomitant]
     Active Substance: CARVEDILOL
  16. TIOTROPIUM BROMIDE [Concomitant]
     Active Substance: TIOTROPIUM BROMIDE

REACTIONS (2)
  - Haemorrhagic diathesis [Not Recovered/Not Resolved]
  - Platelet disorder [Unknown]

NARRATIVE: CASE EVENT DATE: 20191102
